FAERS Safety Report 20084719 (Version 2)
Quarter: 2024Q3

REPORT INFORMATION
  Report Type: Spontaneous
  Country: FR (occurrence: FR)
  Receive Date: 20211118
  Receipt Date: 20240909
  Transmission Date: 20241017
  Serious: Yes (Death, Life-Threatening, Congenital Anomaly, Other)
  Sender: AUROBINDO
  Company Number: FR-MACLEODS PHARMA UK LTD-MAC2021033050

PATIENT
  Sex: Male
  Weight: 2.1 kg

DRUGS (3)
  1. DARUNAVIR [Suspect]
     Active Substance: DARUNAVIR
     Indication: Product used for unknown indication
     Dosage: UNK (UNK, ONE COURSE)
     Route: 064
  2. RITONAVIR [Suspect]
     Active Substance: RITONAVIR
     Indication: Product used for unknown indication
     Dosage: UNK (UNK, ONE COURSE)
     Route: 064
  3. EMTRICITABINE\TENOFOVIR DISOPROXIL [Suspect]
     Active Substance: EMTRICITABINE\TENOFOVIR DISOPROXIL
     Indication: Product used for unknown indication
     Dosage: UNK (UNK, 1 COURSE)
     Route: 064

REACTIONS (9)
  - Death [Fatal]
  - Heart disease congenital [Unknown]
  - Ventricular hypoplasia [Unknown]
  - Atrioventricular septal defect [Unknown]
  - Trisomy 21 [Unknown]
  - Pulmonary hypertension [Unknown]
  - Gene mutation [Unknown]
  - Foetal exposure during pregnancy [Unknown]
  - Coarctation of the aorta [Unknown]
